FAERS Safety Report 7128599-5 (Version None)
Quarter: 2010Q4

REPORT INFORMATION
  Report Type: 
  Country: None (occurrence: None)
  Receive Date: 20101130
  Receipt Date: 20101116
  Transmission Date: 20110411
  Serious: Yes (Other)
  Sender: FDA-Public Use
  Company Number: US-SANOFI-AVENTIS-2010SA070711

PATIENT
  Sex: Male

DRUGS (12)
  1. MULTAQ [Suspect]
     Indication: ATRIAL FIBRILLATION
     Route: 048
     Dates: start: 20100501, end: 20101101
  2. MULTAQ [Suspect]
     Indication: ATRIAL FLUTTER
     Route: 048
     Dates: start: 20100501, end: 20101101
  3. AMIODARONE [Concomitant]
  4. PLAVIX [Concomitant]
  5. VALSARTAN [Concomitant]
  6. CARVEDILOL [Concomitant]
  7. ALDACTONE [Concomitant]
  8. ROSUVASTATIN CALCIUM [Concomitant]
  9. WARFARIN [Concomitant]
  10. WARFARIN [Concomitant]
  11. ZANTAC [Concomitant]
  12. VITAMINS [Concomitant]

REACTIONS (1)
  - TORSADE DE POINTES [None]
